FAERS Safety Report 6093953-X (Version None)
Quarter: 2009Q1

REPORT INFORMATION
  Report Type: 
  Country: None (occurrence: None)
  Receive Date: 20090226
  Receipt Date: 20090220
  Transmission Date: 20090719
  Serious: Yes (Hospitalization)
  Sender: FDA-Public Use
  Company Number: A0770315A

PATIENT
  Age: 52 Year
  Sex: Female
  Weight: 111.4 kg

DRUGS (12)
  1. AVANDIA [Suspect]
     Indication: DIABETES MELLITUS
     Dosage: 8MG PER DAY
     Route: 048
     Dates: start: 19990101, end: 20060103
  2. INSULIN [Concomitant]
  3. METOPROLOL [Concomitant]
  4. TOPROL-XL [Concomitant]
  5. PREDNISONE TAB [Concomitant]
  6. FUROSEMIDE [Concomitant]
  7. NEXIUM [Concomitant]
  8. PRILOSEC [Concomitant]
  9. LEVOTHYROXINE SODIUM [Concomitant]
  10. DILAUDID [Concomitant]
  11. PERCOCET [Concomitant]
  12. FENTANYL [Concomitant]
     Route: 062

REACTIONS (2)
  - BLINDNESS UNILATERAL [None]
  - CEREBROVASCULAR ACCIDENT [None]
